FAERS Safety Report 8921939 (Version 1)
Quarter: 2012Q4

REPORT INFORMATION
  Report Type: Spontaneous
  Country: US (occurrence: None)
  Receive Date: 20121119
  Receipt Date: 20121119
  Transmission Date: 20130627
  Serious: Yes (Life-Threatening)
  Sender: FDA-Public Use
  Company Number: None

PATIENT
  Age: 48 Year
  Sex: Female
  Weight: 109.32 kg

DRUGS (2)
  1. VICKS [Suspect]
     Indication: FLU SYMPTOMS
     Dosage: 4 hours, IV
     Route: 042
     Dates: start: 20121115, end: 20121116
  2. IBUPROFEN [Suspect]
     Indication: FLU SYMPTOMS
     Route: 037
     Dates: start: 19850126, end: 20121116

REACTIONS (5)
  - Product tampering [None]
  - Pyrexia [None]
  - Malaise [None]
  - Incorrect storage of drug [None]
  - Impaired work ability [None]
